FAERS Safety Report 26107530 (Version 1)
Quarter: 2025Q4

REPORT INFORMATION
  Report Type: Spontaneous
  Country: CN (occurrence: CN)
  Receive Date: 20251201
  Receipt Date: 20251201
  Transmission Date: 20260117
  Serious: Yes (Hospitalization, Other)
  Sender: PFIZER
  Company Number: CN-PFIZER INC-PV202500116930

PATIENT
  Age: 62 Year
  Sex: Male

DRUGS (5)
  1. BENEFIX [Suspect]
     Active Substance: COAGULATION FACTOR IX RECOMBINANT HUMAN\ISOPROPYL ALCOHOL
     Indication: Factor IX deficiency
     Dosage: 1500 IU
     Route: 042
  2. INSULIN GLARGINE [Concomitant]
     Active Substance: INSULIN GLARGINE
     Indication: Type 2 diabetes mellitus
     Dosage: CARTRIDGE INJECTION, 10U QN
  3. SOFOSBUVIR [Concomitant]
     Active Substance: SOFOSBUVIR
     Indication: Hepatitis C
     Dosage: 1 TABLET QN
  4. COBLOPASVIR HYDROCHLORIDE [Concomitant]
     Indication: Hepatitis C
     Dosage: 1 CAPSULE GN
  5. PROTHROMBIN COMPLEX CONCENTRATE [Concomitant]
     Active Substance: COAGULATION FACTOR IX HUMAN\COAGULATION FACTOR VII HUMAN\COAGULATION FACTOR X HUMAN\PROTEIN C\PROTEI
     Indication: Factor IX deficiency
     Dosage: UNK

REACTIONS (9)
  - Extravasation blood [Unknown]
  - Drug ineffective [Unknown]
  - Fall [Unknown]
  - Injury [Unknown]
  - Haematoma [Unknown]
  - Necrosis [Unknown]
  - Wound complication [Unknown]
  - Chills [Unknown]
  - Pyrexia [Unknown]

NARRATIVE: CASE EVENT DATE: 20250826
